FAERS Safety Report 14452614 (Version 1)
Quarter: 2018Q1

REPORT INFORMATION
  Report Type: Report from Study
  Country: JP (occurrence: JP)
  Receive Date: 20180129
  Receipt Date: 20180129
  Transmission Date: 20180509
  Serious: No
  Sender: FDA-Public Use
  Company Number: JP-BIOVERATIV-2017BI00349010

PATIENT
  Age: 65 Year
  Sex: Male
  Weight: 73.2 kg

DRUGS (6)
  1. ALPROLIX [Suspect]
     Active Substance: EFTRENONACOG ALFA
     Indication: FACTOR IX DEFICIENCY
     Dosage: ONCE
     Route: 042
     Dates: start: 20141208, end: 20141208
  2. BETAHISTINE MESILATE [Concomitant]
     Active Substance: BETAHISTINE MESILATE
     Indication: MENIERE^S DISEASE
     Route: 048
  3. NORVASC [Concomitant]
     Active Substance: AMLODIPINE BESYLATE
     Indication: HYPERTENSION
     Route: 048
  4. LANSOPRAZOLE. [Concomitant]
     Active Substance: LANSOPRAZOLE
     Indication: GASTRITIS PROPHYLAXIS
     Route: 048
     Dates: start: 20080911
  5. INTENURSE [Concomitant]
     Indication: OSTEOARTHRITIS
     Route: 062
  6. ETIZOLAM [Concomitant]
     Active Substance: ETIZOLAM
     Indication: PANIC DISORDER
     Route: 048

REACTIONS (2)
  - Nasopharyngitis [Recovered/Resolved]
  - Gingival bleeding [Recovered/Resolved]

NARRATIVE: CASE EVENT DATE: 20141210
